FAERS Safety Report 9518576 (Version 1)
Quarter: 2013Q3

REPORT INFORMATION
  Report Type: Spontaneous
  Country: US (occurrence: None)
  Receive Date: 20130910
  Receipt Date: 20130910
  Transmission Date: 20140515
  Serious: No
  Sender: FDA-Public Use
  Company Number: None

PATIENT
  Sex: 0

DRUGS (1)
  1. IMPLANON [Suspect]

REACTIONS (4)
  - Chest pain [None]
  - Pain in extremity [None]
  - Asthenia [None]
  - Mobility decreased [None]
